FAERS Safety Report 9548752 (Version 1)
Quarter: 2013Q2

REPORT INFORMATION
  Report Type: Spontaneous
  Country: US (occurrence: None)
  Receive Date: 20130627
  Receipt Date: 20130627
  Transmission Date: 20140414
  Serious: Yes (Other)
  Sender: FDA-Public Use
  Company Number: 1000044155

PATIENT
  Age: 73 Year
  Sex: Male

DRUGS (2)
  1. LINZESS [Suspect]
     Indication: IRRITABLE BOWEL SYNDROME
     Dosage: 290 MCG (290 MCG, 1 IN 1 D), ORAL
     Route: 048
     Dates: start: 201303
  2. PERDIEM FIBER (PLANTAGO OVATE) (PLANTAGO OVATA) [Concomitant]

REACTIONS (3)
  - Tremor [None]
  - Diarrhoea [None]
  - Drug ineffective [None]
